FAERS Safety Report 14037538 (Version 1)
Quarter: 2017Q4

REPORT INFORMATION
  Report Type: Spontaneous
  Country: US (occurrence: US)
  Receive Date: 20171003
  Receipt Date: 20171003
  Transmission Date: 20180321
  Serious: Yes (Other)
  Sender: FDA-Public Use
  Company Number: None

PATIENT
  Age: 38 Year
  Sex: Female
  Weight: 58.5 kg

DRUGS (11)
  1. VITAMIN D [Concomitant]
     Active Substance: CHOLECALCIFEROL
  2. RITALIN [Concomitant]
     Active Substance: METHYLPHENIDATE HYDROCHLORIDE
  3. MONTELUKAST [Suspect]
     Active Substance: MONTELUKAST SODIUM
     Indication: ASTHMA
     Dosage: ?          QUANTITY:30 TABLET(S);?
     Route: 048
     Dates: start: 20170911, end: 20170919
  4. LUMIGAN [Concomitant]
     Active Substance: BIMATOPROST
  5. CYMBALTA [Concomitant]
     Active Substance: DULOXETINE HYDROCHLORIDE
  6. RESTORIL [Concomitant]
     Active Substance: TEMAZEPAM
  7. VICKS NYQUIL COUGH [Concomitant]
     Active Substance: DEXTROMETHORPHAN HYDROBROMIDE\DOXYLAMINE SUCCINATE
  8. FISH OIL [Concomitant]
     Active Substance: FISH OIL
  9. SYMBICORT [Concomitant]
     Active Substance: BUDESONIDE\FORMOTEROL FUMARATE DIHYDRATE
  10. PROAIR HFA [Concomitant]
     Active Substance: ALBUTEROL SULFATE
  11. ALLEVE/ADVIL [Concomitant]

REACTIONS (13)
  - Disturbance in attention [None]
  - Suicidal ideation [None]
  - Insomnia [None]
  - Anxiety [None]
  - Depression [None]
  - Memory impairment [None]
  - Paraesthesia [None]
  - Tachycardia [None]
  - Mania [None]
  - Agitation [None]
  - Nausea [None]
  - Hallucination [None]
  - Diarrhoea [None]

NARRATIVE: CASE EVENT DATE: 20170917
